FAERS Safety Report 15344026 (Version 1)
Quarter: 2018Q3

REPORT INFORMATION
  Report Type: Report from Study
  Country: US (occurrence: US)
  Receive Date: 20180903
  Receipt Date: 20180903
  Transmission Date: 20181010
  Serious: Yes (Other)
  Sender: FDA-Public Use
  Company Number: PHEH2018US035292

PATIENT
  Sex: Male

DRUGS (1)
  1. COSENTYX [Suspect]
     Active Substance: SECUKINUMAB
     Indication: PRODUCT USED FOR UNKNOWN INDICATION
     Route: 065

REACTIONS (6)
  - Wound infection [Recovering/Resolving]
  - Diabetes mellitus [Unknown]
  - Wound complication [Recovered/Resolved]
  - Impaired healing [Unknown]
  - Skin discolouration [Unknown]
  - Skin haemorrhage [Unknown]
